FAERS Safety Report 5714940-4 (Version None)
Quarter: 2008Q2

REPORT INFORMATION
  Report Type: 
  Country: None (occurrence: None)
  Receive Date: 20080423
  Receipt Date: 20080416
  Transmission Date: 20081010
  Serious: Yes (Hospitalization)
  Sender: FDA-Public Use
  Company Number: US-ABBOTT-08P-163-0440389-00

PATIENT
  Sex: Male
  Weight: 72.64 kg

DRUGS (2)
  1. HUMIRA [Suspect]
     Indication: CROHN'S DISEASE
     Dates: start: 20080101, end: 20080214
  2. HUMIRA [Suspect]
     Dosage: STARTER KIT
     Dates: start: 20080101, end: 20080101

REACTIONS (2)
  - ABSCESS [None]
  - SMALL INTESTINAL PERFORATION [None]
